FAERS Safety Report 12285705 (Version 6)
Quarter: 2016Q2

REPORT INFORMATION
  Report Type: Other
  Country: IT (occurrence: IT)
  Receive Date: 20160420
  Receipt Date: 20160617
  Transmission Date: 20160815
  Serious: Yes (Other)
  Sender: FDA-Public Use
  Company Number: IT-MYLANLABS-2016M1016176

PATIENT

DRUGS (1)
  1. CIPROFLOXACIN. [Suspect]
     Active Substance: CIPROFLOXACIN
     Indication: CYSTITIS
     Dosage: 500 MG, QD
     Dates: start: 20160203, end: 20160204

REACTIONS (7)
  - Incorrect dose administered [Unknown]
  - Rash generalised [Recovering/Resolving]
  - Musculoskeletal stiffness [Recovering/Resolving]
  - Muscle tightness [Not Recovered/Not Resolved]
  - Viral infection [Recovering/Resolving]
  - Pruritus generalised [Recovering/Resolving]
  - Arthralgia [Recovering/Resolving]

NARRATIVE: CASE EVENT DATE: 20160203
